FAERS Safety Report 10090168 (Version 1)
Quarter: 2014Q2

REPORT INFORMATION
  Report Type: Spontaneous
  Country: US (occurrence: None)
  Receive Date: 20140410
  Receipt Date: 20140410
  Transmission Date: 20141212
  Serious: Yes (Hospitalization)
  Sender: FDA-Public Use
  Company Number: 1334929

PATIENT
  Sex: 0

DRUGS (2)
  1. ROCEPHIN (CEFTRIAXONE SODIUM) [Suspect]
     Indication: PRODUCT USED FOR UNKNOWN INDICATION
     Dosage: INTRAVENOUS (NOT OTHERWISE SPECIFIED)
     Route: 042
  2. METRONIDAZOLE (METRONIDAZOLE) [Concomitant]

REACTIONS (1)
  - Hypersensitivity [None]
